FAERS Safety Report 23527324 (Version 2)
Quarter: 2024Q1

REPORT INFORMATION
  Report Type: Spontaneous
  Country: LY (occurrence: LY)
  Receive Date: 20240215
  Receipt Date: 20240220
  Transmission Date: 20240410
  Serious: Yes (Other)
  Sender: FDA-Public Use
  Company Number: LY-ORGANON-O2401LBY002687

PATIENT
  Sex: Female

DRUGS (1)
  1. IMPLANON [Suspect]
     Active Substance: ETONOGESTREL
     Dosage: 1 IMPLANT
     Route: 059
     Dates: start: 20240103

REACTIONS (18)
  - Device expulsion [Not Recovered/Not Resolved]
  - Muscle spasms [Recovered/Resolved]
  - Abscess rupture [Not Recovered/Not Resolved]
  - Movement disorder [Not Recovered/Not Resolved]
  - Dysmenorrhoea [Recovered/Resolved]
  - Back pain [Recovered/Resolved]
  - Arthralgia [Recovered/Resolved]
  - Pain in extremity [Recovered/Resolved]
  - Implant site pain [Recovered/Resolved]
  - Implant site erythema [Not Recovered/Not Resolved]
  - Implant site infection [Not Recovered/Not Resolved]
  - Heavy menstrual bleeding [Not Recovered/Not Resolved]
  - Back pain [Not Recovered/Not Resolved]
  - Implant site bruising [Not Recovered/Not Resolved]
  - Implant site pain [Not Recovered/Not Resolved]
  - Implant site abscess [Not Recovered/Not Resolved]
  - Suspected counterfeit product [Unknown]
  - Product quality issue [Unknown]

NARRATIVE: CASE EVENT DATE: 20230106
